FAERS Safety Report 5170781-0 (Version None)
Quarter: 2006Q4

REPORT INFORMATION
  Report Type: 
  Country: None (occurrence: None)
  Receive Date: 20060919
  Receipt Date: 20060523
  Transmission Date: 20070319
  Serious: No
  Sender: FDA-Public Use
  Company Number: BDI-008278

PATIENT
  Age: 57 Year
  Sex: Male

DRUGS (2)
  1. MULTIHANCE [Suspect]
     Indication: ANGIOGRAM
     Dosage: 60 ML ONCE IV
     Route: 042
     Dates: start: 20060503, end: 20060503
  2. MULTIHANCE [Suspect]
     Indication: INTERMITTENT CLAUDICATION
     Dosage: 60 ML ONCE IV
     Route: 042
     Dates: start: 20060503, end: 20060503

REACTIONS (1)
  - HYPERSENSITIVITY [None]
